FAERS Safety Report 7556297-2 (Version None)
Quarter: 2011Q2

REPORT INFORMATION
  Report Type: 
  Country: None (occurrence: None)
  Receive Date: 20110620
  Receipt Date: 20110616
  Transmission Date: 20111010
  Serious: No
  Sender: FDA-Public Use
  Company Number: US-PFIZER INC-2011132508

PATIENT
  Sex: Female
  Weight: 64 kg

DRUGS (4)
  1. IBUPROFEN (ADVIL) [Suspect]
     Indication: HEADACHE
  2. SYNTHROID [Concomitant]
     Indication: HYPERTHYROIDISM
     Dosage: 100 MCG, DAILY
  3. INSULIN [Concomitant]
     Indication: TYPE 1 DIABETES MELLITUS
     Dosage: 6 IU, AS NEEDED
  4. IBUPROFEN (ADVIL) [Suspect]
     Indication: PAIN
     Dosage: 200 MG, AS NEEDED

REACTIONS (1)
  - DRUG ADMINISTRATION ERROR [None]
